FAERS Safety Report 5323943-3 (Version None)
Quarter: 2007Q2

REPORT INFORMATION
  Report Type: 
  Country: None (occurrence: None)
  Receive Date: 20070514
  Receipt Date: 20070508
  Transmission Date: 20071010
  Serious: Yes (Other)
  Sender: FDA-Public Use
  Company Number: CA-ROCHE-496674

PATIENT
  Age: 53 Year
  Sex: Female

DRUGS (4)
  1. ANAPROX [Suspect]
     Indication: DRUG USE FOR UNKNOWN INDICATION
     Route: 065
  2. APO-NAPROXEN [Suspect]
     Indication: DRUG USE FOR UNKNOWN INDICATION
     Route: 065
  3. KEPPRA [Concomitant]
  4. FRISIUM [Concomitant]

REACTIONS (3)
  - EMBOLISM [None]
  - OEDEMA PERIPHERAL [None]
  - PAIN [None]
